FAERS Safety Report 10456588 (Version 2)
Quarter: 2014Q4

REPORT INFORMATION
  Report Type: Spontaneous
  Country: JP (occurrence: JP)
  Receive Date: 20140916
  Receipt Date: 20141120
  Transmission Date: 20150528
  Serious: Yes (Other)
  Sender: FDA-Public Use
  Company Number: PHHY2009JP072704

PATIENT
  Age: 55 Year
  Sex: Male

DRUGS (1)
  1. NEORAL [Suspect]
     Active Substance: CYCLOSPORINE
     Indication: PSORIASIS
     Dosage: UNK
     Route: 048

REACTIONS (7)
  - Eye pain [Unknown]
  - Arthralgia [Unknown]
  - Cataract [Unknown]
  - Uveitis [Unknown]
  - Iritis [Unknown]
  - Iridocyclitis [Unknown]
  - Glaucoma [Unknown]

NARRATIVE: CASE EVENT DATE: 200409
